FAERS Safety Report 20689848 (Version 1)
Quarter: 2022Q2

REPORT INFORMATION
  Report Type: Spontaneous
  Country: US (occurrence: US)
  Receive Date: 20220408
  Receipt Date: 20220408
  Transmission Date: 20220721
  Serious: No
  Sender: FDA-Public Use
  Company Number: US-PFIZER INC-202200531889

PATIENT
  Age: 57 Year
  Sex: Female

DRUGS (2)
  1. PAXLOVID [Suspect]
     Active Substance: NIRMATRELVIR\RITONAVIR
     Indication: COVID-19
     Dosage: UNK
  2. ROSUVASTATIN CALCIUM [Concomitant]
     Active Substance: ROSUVASTATIN CALCIUM
     Dosage: UNK
     Dates: end: 20220405

REACTIONS (9)
  - Malaise [Unknown]
  - Dysgeusia [Unknown]
  - Cough [Unknown]
  - Burning sensation [Unknown]
  - Ageusia [Unknown]
  - Condition aggravated [Unknown]
  - Pain [Unknown]
  - Insomnia [Unknown]
  - Throat irritation [Unknown]
